FAERS Safety Report 4875873-9 (Version None)
Quarter: 2006Q1

REPORT INFORMATION
  Report Type: 
  Country: None (occurrence: None)
  Receive Date: 20060109
  Receipt Date: 20051006
  Transmission Date: 20060701
  Serious: Yes (Hospitalization)
  Sender: FDA-Public Use
  Company Number: US-MERCK-0510USA05768

PATIENT
  Age: 78 Year
  Sex: Female
  Weight: 71 kg

DRUGS (6)
  1. VIOXX [Suspect]
     Indication: ARTHRALGIA
     Route: 048
     Dates: start: 20000101, end: 20040101
  2. ATENOLOL [Concomitant]
     Route: 048
  3. AVAPRO [Concomitant]
     Route: 048
  4. ECOTRIN [Concomitant]
     Route: 065
  5. [THERAPY UNSPECIFIED] [Concomitant]
     Route: 065
  6. PROTONIX [Concomitant]
     Route: 065

REACTIONS (7)
  - ANXIETY [None]
  - BRADYCARDIA [None]
  - HEART RATE DECREASED [None]
  - HYPERTENSION [None]
  - ISCHAEMIC STROKE [None]
  - PAIN [None]
  - TRANSIENT ISCHAEMIC ATTACK [None]
